FAERS Safety Report 6381214-0 (Version None)
Quarter: 2009Q3

REPORT INFORMATION
  Report Type: 
  Country: None (occurrence: None)
  Receive Date: 20090924
  Receipt Date: 20090910
  Transmission Date: 20100115
  Serious: Yes (Other)
  Sender: FDA-Public Use
  Company Number: 001733

PATIENT
  Sex: Female

DRUGS (3)
  1. VIMPAT [Suspect]
  2. LAMOTRIGINE [Suspect]
     Indication: EPILEPSY
     Dosage: UPTITRATED TO THE HIGHEST DOSE
  3. CARBAMAZEPINE [Suspect]
     Dosage: UPTITRATED TO THE HIGHEST DOSE

REACTIONS (2)
  - LEUKOPENIA [None]
  - THERAPEUTIC RESPONSE DECREASED [None]
